FAERS Safety Report 19408072 (Version 1)
Quarter: 2021Q2

REPORT INFORMATION
  Report Type: Spontaneous
  Country: CN (occurrence: CN)
  Receive Date: 20210611
  Receipt Date: 20210611
  Transmission Date: 20210717
  Serious: Yes (Hospitalization)
  Sender: FDA-Public Use
  Company Number: CN-PFIZER INC-2021635454

PATIENT
  Age: 72 Year
  Sex: Female

DRUGS (3)
  1. SODIUM CHLORIDE. [Concomitant]
     Active Substance: SODIUM CHLORIDE
     Indication: VEHICLE SOLUTION USE
     Dosage: 250.000 ML, 1X/DAY
     Route: 041
     Dates: start: 20210514, end: 20210518
  2. GINKGOLIDE [Suspect]
     Active Substance: GINKGO BILOBA LEAF EXTRACT
     Indication: CEREBRAL INFARCTION
     Dosage: 10.000 ML, 1X/DAY
     Route: 041
     Dates: start: 20210514, end: 20210518
  3. LIPITOR [Suspect]
     Active Substance: ATORVASTATIN CALCIUM
     Indication: DYSLIPIDAEMIA
     Dosage: 40.000 MG, 1X/DAY
     Route: 048
     Dates: start: 20210514, end: 20210519

REACTIONS (1)
  - Drug eruption [Recovering/Resolving]

NARRATIVE: CASE EVENT DATE: 20210515
